FAERS Safety Report 6426573-5 (Version None)
Quarter: 2009Q4

REPORT INFORMATION
  Report Type: 
  Country: None (occurrence: None)
  Receive Date: 20091104
  Receipt Date: 20091026
  Transmission Date: 20100525
  Serious: Yes (Other)
  Sender: FDA-Public Use
  Company Number: US-JNJFOC-20090903051

PATIENT
  Sex: Male
  Weight: 98.43 kg

DRUGS (4)
  1. REMICADE [Suspect]
     Route: 042
     Dates: start: 20081201, end: 20090709
  2. REMICADE [Suspect]
     Indication: COLITIS ULCERATIVE
     Route: 042
     Dates: start: 20081201, end: 20090709
  3. TIZANIDINE HCL [Concomitant]
     Indication: MUSCLE SPASMS
  4. CIALIS [Concomitant]

REACTIONS (3)
  - ARTHRALGIA [None]
  - DYSPNOEA EXERTIONAL [None]
  - ECHOCARDIOGRAM ABNORMAL [None]
